FAERS Safety Report 20222514 (Version 1)
Quarter: 2021Q4

REPORT INFORMATION
  Report Type: Report from Study
  Country: US (occurrence: US)
  Receive Date: 20211223
  Receipt Date: 20211223
  Transmission Date: 20220303
  Serious: Yes (Other)
  Sender: FDA-Public Use
  Company Number: US-MYLANLABS-2021M1046259

PATIENT
  Sex: Female
  Weight: 70 kg

DRUGS (4)
  1. GLATIRAMER ACETATE [Suspect]
     Active Substance: GLATIRAMER ACETATE
     Indication: Multiple sclerosis
     Dosage: 40 MILLIGRAM, 3XW
     Route: 058
     Dates: start: 202107
  2. GLATIRAMER ACETATE [Suspect]
     Active Substance: GLATIRAMER ACETATE
     Indication: Relapsing-remitting multiple sclerosis
  3. DEVICE [Suspect]
     Active Substance: DEVICE
     Indication: Multiple sclerosis
     Dosage: UNK
  4. DEVICE [Suspect]
     Active Substance: DEVICE
     Indication: Relapsing-remitting multiple sclerosis

REACTIONS (18)
  - Multiple sclerosis relapse [Unknown]
  - Feeling hot [Recovered/Resolved]
  - Emotional disorder [Unknown]
  - Taste disorder [Unknown]
  - Myalgia [Recovered/Resolved]
  - Injection site bruising [Unknown]
  - Product after taste [Recovered/Resolved]
  - Pruritus [Unknown]
  - Injection site erythema [Recovered/Resolved]
  - Injection site pain [Recovering/Resolving]
  - Injection site mass [Recovered/Resolved]
  - Injection site induration [Unknown]
  - Injection site swelling [Unknown]
  - Product dose omission issue [Unknown]
  - Muscle spasms [Unknown]
  - Cognitive disorder [Unknown]
  - Aphasia [Unknown]
  - Mass [Recovered/Resolved]
